FAERS Safety Report 15814700 (Version 2)
Quarter: 2019Q1

REPORT INFORMATION
  Report Type: Report from Study
  Country: US (occurrence: US)
  Receive Date: 20190111
  Receipt Date: 20190227
  Transmission Date: 20190417
  Serious: Yes (Hospitalization)
  Sender: FDA-Public Use
  Company Number: US-ACTELION-A-US2017-155154

PATIENT
  Age: 81 Year
  Sex: Female

DRUGS (5)
  1. ASPIRIN. [Suspect]
     Active Substance: ASPIRIN
     Indication: PRODUCT USED FOR UNKNOWN INDICATION
     Dosage: UNK
     Route: 065
     Dates: start: 20170107
  2. TYVASO [Concomitant]
     Active Substance: TREPROSTINIL
  3. ALEVE [Suspect]
     Active Substance: NAPROXEN SODIUM
     Indication: PRODUCT USED FOR UNKNOWN INDICATION
     Dosage: UNK
     Route: 065
     Dates: start: 20170107
  4. OXYGEN. [Concomitant]
     Active Substance: OXYGEN
  5. OPSUMIT [Suspect]
     Active Substance: MACITENTAN
     Indication: PULMONARY ARTERIAL HYPERTENSION
     Dosage: 10 MG, QD
     Route: 048
     Dates: start: 20150724

REACTIONS (18)
  - Fluid overload [Unknown]
  - Nausea [Unknown]
  - Unevaluable event [Unknown]
  - Dizziness [Unknown]
  - Transfusion [Unknown]
  - Haematemesis [Not Recovered/Not Resolved]
  - Dyspnoea [Unknown]
  - Presyncope [Unknown]
  - Rectal haemorrhage [Recovered/Resolved]
  - Fluid retention [Unknown]
  - Dyspepsia [Unknown]
  - Haemorrhage [Unknown]
  - Gastrointestinal haemorrhage [Recovered/Resolved]
  - Melaena [Recovered/Resolved]
  - Head discomfort [Unknown]
  - Haemoglobin decreased [Unknown]
  - Carbon dioxide increased [Unknown]
  - Oxygen therapy [Unknown]

NARRATIVE: CASE EVENT DATE: 2016
